FAERS Safety Report 7036398-8 (Version None)
Quarter: 2010Q4

REPORT INFORMATION
  Report Type: 
  Country: None (occurrence: None)
  Receive Date: 20101009
  Receipt Date: 20100923
  Transmission Date: 20110411
  Serious: Yes (Hospitalization)
  Sender: FDA-Public Use
  Company Number: DE-AMGEN-02080069

PATIENT
  Sex: Male
  Weight: 105 kg

DRUGS (9)
  1. ENBREL [Suspect]
     Indication: POLYARTHRITIS
  2. ENBREL [Suspect]
  3. DECORTIN [Concomitant]
     Indication: POLYARTHRITIS
     Route: 048
  4. RANTUDIL - SLOW RELEASE [Concomitant]
  5. PYRIDOSTIGMINE BROMIDE [Concomitant]
  6. MAGNESIUM [Concomitant]
  7. CALCIUM [Concomitant]
  8. IMUREK [Concomitant]
     Indication: POLYARTHRITIS
     Route: 048
  9. VIGANTOLETTEN [Concomitant]

REACTIONS (12)
  - CHILLS [None]
  - CONDITION AGGRAVATED [None]
  - DEMYELINATION [None]
  - GAIT DISTURBANCE [None]
  - MALAISE [None]
  - MOTOR DYSFUNCTION [None]
  - MYASTHENIC SYNDROME [None]
  - PAIN [None]
  - PSEUDOBULBAR PALSY [None]
  - PYREXIA [None]
  - QUADRIPARESIS [None]
  - TREMOR [None]
